FAERS Safety Report 7583612-6 (Version None)
Quarter: 2011Q2

REPORT INFORMATION
  Report Type: 
  Country: None (occurrence: None)
  Receive Date: 20110630
  Receipt Date: 20110624
  Transmission Date: 20111010
  Serious: Yes (Hospitalization)
  Sender: FDA-Public Use
  Company Number: A0933570A

PATIENT
  Age: 35 Year
  Sex: Male
  Weight: 143.9 kg

DRUGS (10)
  1. VELCADE [Suspect]
     Indication: AMYLOIDOSIS
     Dosage: 1MGM2 CYCLIC
     Route: 042
     Dates: start: 20110527, end: 20110606
  2. PROCHLORPERAZINE TAB [Concomitant]
  3. ACYCLOVIR [Concomitant]
  4. DEXAMETHASONE [Suspect]
     Indication: AMYLOIDOSIS
  5. MELPHALAN HYDROCHLORIDE [Suspect]
     Indication: AMYLOIDOSIS
     Route: 042
     Dates: start: 20110531, end: 20110601
  6. REMERON [Concomitant]
  7. ACETAMINOPHEN [Concomitant]
  8. SENNA [Concomitant]
  9. IMODIUM [Concomitant]
  10. ATENOLOL [Concomitant]

REACTIONS (2)
  - DIZZINESS [None]
  - DIARRHOEA [None]
